FAERS Safety Report 4813910-8 (Version None)
Quarter: 2005Q4

REPORT INFORMATION
  Report Type: 
  Country: None (occurrence: None)
  Receive Date: 20051028
  Receipt Date: 20040108
  Transmission Date: 20060501
  Serious: No
  Sender: FDA-Public Use
  Company Number: US-GLAXOSMITHKLINE-A0491982A

PATIENT
  Age: 68 Year
  Sex: Female
  Weight: 88.2 kg

DRUGS (12)
  1. SEREVENT [Suspect]
     Indication: CHRONIC OBSTRUCTIVE PULMONARY DISEASE
     Dosage: 1PUFF TWICE PER DAY
     Route: 055
     Dates: start: 20031201, end: 20040107
  2. ALBUTEROL [Concomitant]
  3. PULMICORT [Concomitant]
  4. SALINE NASAL SPRAY [Concomitant]
  5. NASONEX [Concomitant]
  6. VERAPAMIL [Concomitant]
  7. LASIX [Concomitant]
  8. ASPIRIN [Concomitant]
  9. NEXIUM [Concomitant]
  10. POTASSIUM [Concomitant]
  11. CALCIUM GLUCONATE [Concomitant]
  12. CENTRUM SILVER [Concomitant]

REACTIONS (5)
  - DRUG INEFFECTIVE [None]
  - DYSPNOEA [None]
  - LOWER RESPIRATORY TRACT INFECTION [None]
  - PHARYNGOLARYNGEAL PAIN [None]
  - STOMACH DISCOMFORT [None]
